FAERS Safety Report 6260824-5 (Version None)
Quarter: 2009Q3

REPORT INFORMATION
  Report Type: 
  Country: None (occurrence: None)
  Receive Date: 20090707
  Receipt Date: 20090622
  Transmission Date: 20100115
  Serious: Yes (Other)
  Sender: FDA-Public Use
  Company Number: A0794816A

PATIENT
  Age: 17 Year
  Sex: Male

DRUGS (4)
  1. BUPROPION HCL [Suspect]
     Indication: DRUG USE FOR UNKNOWN INDICATION
     Dosage: 300 MG / PER DAY / ORAL
     Route: 048
     Dates: start: 20090615
  2. TRAMADOL HCL [Suspect]
     Indication: DRUG USE FOR UNKNOWN INDICATION
     Dosage: 600 MG / PER DAY /
     Dates: start: 20090615
  3. UNKNOWN (FORMULATION UNKNOWN) UNKNOWN [Suspect]
     Indication: DRUG USE FOR UNKNOWN INDICATION
     Dosage: INHALED
     Route: 055
     Dates: start: 20090617
  4. QUETIAPINE FUMARATE [Suspect]
     Indication: DRUG USE FOR UNKNOWN INDICATION
     Dosage: 50 MG / PER DAY /
     Dates: start: 20090616

REACTIONS (7)
  - CONTUSION [None]
  - CONVULSION [None]
  - EXCORIATION [None]
  - HAEMORRHAGE [None]
  - MIDDLE INSOMNIA [None]
  - SWELLING [None]
  - URINARY RETENTION [None]
